FAERS Safety Report 5009009-0 (Version None)
Quarter: 2006Q2

REPORT INFORMATION
  Report Type: 
  Country: None (occurrence: None)
  Receive Date: 20060519
  Receipt Date: 20060509
  Transmission Date: 20061013
  Serious: Yes (Hospitalization, Other)
  Sender: FDA-Public Use
  Company Number: 2006AL001170

PATIENT
  Age: 47 Year
  Sex: Female

DRUGS (8)
  1. LORAZEPAM [Suspect]
     Dosage: PO
     Route: 048
  2. FLUOXETINE [Concomitant]
  3. AMITRIPTYLINE HCL [Concomitant]
  4. OLANZAPINE [Concomitant]
  5. VELAFAXINE XR [Concomitant]
  6. METOPROLOL [Concomitant]
  7. ACETAMINOPHEN AND HYDROCODONE BITARTRATE [Concomitant]
  8. PANTOPRAZOLE [Concomitant]

REACTIONS (10)
  - BLOOD PH INCREASED [None]
  - ELECTROCARDIOGRAM QRS COMPLEX SHORTENED [None]
  - HEPATIC FAILURE [None]
  - HYPOTENSION [None]
  - ISCHAEMIC HEPATITIS [None]
  - LOSS OF CONSCIOUSNESS [None]
  - OVERDOSE [None]
  - RHABDOMYOLYSIS [None]
  - SINUS BRADYCARDIA [None]
  - UNRESPONSIVE TO PAIN STIMULI [None]
